FAERS Safety Report 6844032-2 (Version None)
Quarter: 2010Q3

REPORT INFORMATION
  Report Type: 
  Country: None (occurrence: None)
  Receive Date: 20100715
  Receipt Date: 20100708
  Transmission Date: 20110219
  Serious: Yes (Death, Hospitalization)
  Sender: FDA-Public Use
  Company Number: KR-ELI_LILLY_AND_COMPANY-KR201007001861

PATIENT
  Sex: Male
  Weight: 70 kg

DRUGS (11)
  1. PEMETREXED [Suspect]
     Indication: NON-SMALL CELL LUNG CANCER
     Dosage: 800 MG, DAY 1 EVERY 21 DAYS
     Route: 042
     Dates: start: 20081010
  2. FOLIC ACID [Concomitant]
     Dosage: 1 MG, DAILY (1/D)
     Route: 048
     Dates: start: 20081002, end: 20090122
  3. VITAMIN B-12 [Concomitant]
     Dosage: 1 MG, UNKNOWN
     Route: 030
     Dates: start: 20081002, end: 20081002
  4. DEXAMETHASONE ACETATE [Concomitant]
     Dosage: 4 MG, 2/D
     Route: 048
     Dates: start: 20090113, end: 20090115
  5. MESULID [Concomitant]
     Indication: PAIN
     Dosage: 100 MG, 2/D
     Dates: start: 20081126
  6. TYLENOL                                 /SCH/ [Concomitant]
     Indication: PAIN
     Dosage: 650 MG, 3/D
     Dates: start: 20081126
  7. RANITIDINE HYDROCHLORIDE [Concomitant]
     Indication: PROPHYLAXIS
     Dosage: UNK, 2/D
     Dates: start: 20081126
  8. DOXOFYLLINE [Concomitant]
     Indication: COUGH
     Dosage: UNK, 2/D
     Dates: start: 20081203
  9. MACPERAN [Concomitant]
     Indication: PROPHYLAXIS
     Dosage: 5 MG, 3/D
     Dates: start: 20090113, end: 20090119
  10. MAG [Concomitant]
     Indication: CONSTIPATION
     Dosage: 500 MG, 3/D
     Dates: start: 20090113, end: 20090119
  11. DURAGESIC-100 [Concomitant]
     Indication: PAIN
     Dosage: UNK, UNKNOWN
     Dates: start: 20081031

REACTIONS (2)
  - PNEUMONIA [None]
  - SEPSIS [None]
